FAERS Safety Report 5911691-8 (Version None)
Quarter: 2008Q4

REPORT INFORMATION
  Report Type: 
  Country: None (occurrence: None)
  Receive Date: 20081007
  Receipt Date: 20080929
  Transmission Date: 20090506
  Serious: Yes (Hospitalization)
  Sender: FDA-Public Use
  Company Number: US-ELI_LILLY_AND_COMPANY-US200809002355

PATIENT
  Sex: Female
  Weight: 99.773 kg

DRUGS (25)
  1. BYETTA [Suspect]
     Indication: TYPE 2 DIABETES MELLITUS
     Dosage: 5 UG, 2/D
     Route: 058
     Dates: start: 20061004, end: 20080201
  2. BYETTA [Suspect]
     Dosage: 5 UG, 2/D
     Route: 058
     Dates: start: 20080201, end: 20080101
  3. BYETTA [Suspect]
     Dosage: 10 UG, 2/D
     Route: 058
     Dates: start: 20080101
  4. METFORMIN HCL [Concomitant]
     Indication: TYPE 2 DIABETES MELLITUS
     Dosage: UNK, UNKNOWN
  5. GLUCOTROL [Concomitant]
     Indication: TYPE 2 DIABETES MELLITUS
     Dosage: UNK, UNKNOWN
  6. LASIX [Concomitant]
     Dosage: UNK, UNKNOWN
  7. ALDACTONE [Concomitant]
     Dosage: 50 MG, DAILY (1/D)
  8. DIGOXIN [Concomitant]
     Dosage: 0.125 MG, DAILY (1/D)
  9. COREG [Concomitant]
     Dosage: 2.5 MG, DAILY (1/D)
  10. PREMPRO [Concomitant]
     Dosage: UNK, DAILY (1/D)
  11. SYNTHROID [Concomitant]
     Dosage: 275 MG, DAILY (1/D)
  12. LOPID [Concomitant]
     Indication: BLOOD TRIGLYCERIDES
     Dosage: 600 MG, 2/D
  13. ZANTAC [Concomitant]
     Indication: GASTROOESOPHAGEAL REFLUX DISEASE
     Dosage: UNK, UNKNOWN
  14. DARVOCET [Concomitant]
     Indication: BACK PAIN
     Dosage: UNK, UNKNOWN
  15. OTHER VITAMIN PRODUCTS, COMBINATIONS [Concomitant]
     Indication: PROPHYLAXIS
     Dosage: UNK, UNKNOWN
  16. ACE INHIBITOR NOS [Concomitant]
     Dosage: UNK, UNKNOWN
     Dates: end: 20080201
  17. ACE INHIBITOR NOS [Concomitant]
     Dosage: UNK, UNKNOWN
     Dates: start: 20080301
  18. POTASSIUM CHLORIDE [Concomitant]
     Dosage: 10 MEQ, QOD
  19. LISINOPRIL [Concomitant]
     Dosage: UNK, DAILY (1/D)
  20. GLYBURIDE [Concomitant]
     Dosage: 5 MG, 2/D
  21. FOLTX [Concomitant]
     Dosage: UNK, UNKNOWN
  22. LANTUS [Concomitant]
     Dosage: 12 U, DAILY (1/D)
     Dates: end: 20080630
  23. LANTUS [Concomitant]
     Dosage: 18 U, UNKNOWN
     Dates: start: 20080630
  24. SEREVENT [Concomitant]
     Dosage: UNK, UNKNOWN
  25. FLONASE [Concomitant]
     Indication: CHRONIC SINUSITIS
     Dosage: UNK, UNKNOWN
     Dates: start: 20080401

REACTIONS (16)
  - ASTHMA [None]
  - BLOOD GLUCOSE INCREASED [None]
  - BLOOD PRESSURE INCREASED [None]
  - BRONCHITIS CHRONIC [None]
  - CHEST PAIN [None]
  - DYSPHONIA [None]
  - DYSPNOEA [None]
  - EAR PAIN [None]
  - HAIR GROWTH ABNORMAL [None]
  - INSOMNIA [None]
  - LYMPHADENOPATHY [None]
  - MUSCULOSKELETAL DISCOMFORT [None]
  - NODAL OSTEOARTHRITIS [None]
  - NODULE [None]
  - OEDEMA PERIPHERAL [None]
  - SPINAL DISORDER [None]
